FAERS Safety Report 4730537-7 (Version None)
Quarter: 2005Q3

REPORT INFORMATION
  Report Type: 
  Country: None (occurrence: None)
  Receive Date: 20050725
  Receipt Date: 20050210
  Transmission Date: 20060218
  Serious: No
  Sender: FDA-Public Use
  Company Number: USA050290515

PATIENT
  Sex: Male

DRUGS (2)
  1. STRATTERA [Suspect]
  2. PROZAC [Concomitant]

REACTIONS (3)
  - BLOOD CHOLESTEROL INCREASED [None]
  - LOW DENSITY LIPOPROTEIN [None]
  - TOTAL CHOLESTEROL/HDL RATIO ABNORMAL [None]
